FAERS Safety Report 4468068-4 (Version None)
Quarter: 2004Q4

REPORT INFORMATION
  Report Type: 
  Country: None (occurrence: None)
  Receive Date: 20041004
  Receipt Date: 20040924
  Transmission Date: 20050328
  Serious: Yes (Hospitalization)
  Sender: FDA-Public Use
  Company Number: 163-20785-04090295

PATIENT
  Age: 72 Year
  Sex: Male
  Weight: 72.58 kg

DRUGS (2)
  1. THALOMID [Suspect]
     Indication: MALIGNANT MELANOMA
     Dosage: 100 MG/DAY X 2 WKS INCREASED BY 50MG/DAY Q 2WKS TO 200 MG, DAILY; AN 8 WK CYCLE, ORAL
     Route: 048
     Dates: start: 20040831, end: 20040911
  2. TEMOZOLOMIDE (TEMOZOLOMIDE) [Suspect]
     Indication: MALIGNANT MELANOMA
     Dosage: 75 MG/M2, DAILY X 6 WEEKS; AN 8 WEK CYCLE, ORAL
     Route: 048
     Dates: start: 20040831, end: 20040911

REACTIONS (5)
  - HAEMORRHAGIC STROKE [None]
  - LUNG NEOPLASM MALIGNANT [None]
  - MALIGNANT NEOPLASM PROGRESSION [None]
  - METASTATIC MALIGNANT MELANOMA [None]
  - PULMONARY EMBOLISM [None]
